FAERS Safety Report 8622338-4 (Version None)
Quarter: 2012Q3

REPORT INFORMATION
  Report Type: 
  Country: None (occurrence: None)
  Receive Date: 20120827
  Receipt Date: 20120817
  Transmission Date: 20120928
  Serious: Yes (Hospitalization)
  Sender: FDA-Public Use
  Company Number: US-MERCK-1208USA008367

PATIENT

DRUGS (7)
  1. JANUVIA [Suspect]
     Indication: DIABETES MELLITUS
     Dosage: 100 MG, QD
     Route: 048
     Dates: start: 20120519, end: 20120606
  2. PLAVIX [Concomitant]
  3. CRESTOR [Concomitant]
  4. GLUCOPHAGE [Concomitant]
  5. LISINOPRIL [Concomitant]
  6. ISOSORBIDE [Concomitant]
  7. GLIMEPIRIDE [Concomitant]

REACTIONS (1)
  - PANCREATITIS [None]
